FAERS Safety Report 14816167 (Version 1)
Quarter: 2018Q2

REPORT INFORMATION
  Report Type: Spontaneous
  Country: US (occurrence: US)
  Receive Date: 20180417
  Receipt Date: 20180417
  Transmission Date: 20180711
  Serious: Yes (Hospitalization)
  Sender: FDA-Public Use
  Company Number: None

PATIENT
  Age: 67 Year
  Sex: Female
  Weight: 62.7 kg

DRUGS (1)
  1. DALTEPARIN 10,000 IU [Suspect]
     Active Substance: DALTEPARIN SODIUM
     Route: 058
     Dates: start: 20170928, end: 20180130

REACTIONS (2)
  - Fatigue [None]
  - Diarrhoea [None]

NARRATIVE: CASE EVENT DATE: 20180208
